FAERS Safety Report 9252071 (Version 3)
Quarter: 2013Q2

REPORT INFORMATION
  Report Type: Spontaneous
  Country: JP (occurrence: JP)
  Receive Date: 20130424
  Receipt Date: 20130603
  Transmission Date: 20140414
  Serious: Yes (Hospitalization)
  Sender: FDA-Public Use
  Company Number: JP-JNJFOC-20130411927

PATIENT
  Age: 54 Year
  Sex: Male

DRUGS (3)
  1. TRAMCET [Suspect]
     Indication: PAIN
     Dosage: 1 PER 1 DAY
     Route: 048
  2. METOCLOPRAMIDE [Concomitant]
     Indication: VOMITING
     Route: 065
  3. METOCLOPRAMIDE [Concomitant]
     Indication: VOMITING
     Route: 065

REACTIONS (2)
  - Mallory-Weiss syndrome [Recovered/Resolved]
  - Vomiting [Recovered/Resolved]
